FAERS Safety Report 10614170 (Version 1)
Quarter: 2014Q4

REPORT INFORMATION
  Report Type: Spontaneous
  Country: US (occurrence: US)
  Receive Date: 20141128
  Receipt Date: 20141128
  Transmission Date: 20150529
  Serious: No
  Sender: FDA-Public Use
  Company Number: US-PFIZER INC-2014326867

PATIENT
  Age: 76 Year
  Sex: Female

DRUGS (4)
  1. DAYPRO [Suspect]
     Active Substance: OXAPROZIN
     Dosage: UNK
  2. KINERET [Suspect]
     Active Substance: ANAKINRA
     Dosage: UNK
  3. AUGMENTIN [Suspect]
     Active Substance: AMOXICILLIN\CLAVULANATE POTASSIUM
     Dosage: UNK
  4. DIFLUNISAL. [Suspect]
     Active Substance: DIFLUNISAL
     Dosage: UNK

REACTIONS (1)
  - Drug hypersensitivity [Unknown]
